FAERS Safety Report 23712574 (Version 1)
Quarter: 2024Q2

REPORT INFORMATION
  Report Type: Spontaneous
  Country: US (occurrence: US)
  Receive Date: 20240405
  Receipt Date: 20240405
  Transmission Date: 20240716
  Serious: Yes (Congenital Anomaly)
  Sender: FDA-Public Use
  Company Number: US-ALLERGAN-2231257US

PATIENT
  Age: 41 Year
  Sex: Male

DRUGS (4)
  1. ACITRETIN [Suspect]
     Active Substance: ACITRETIN
     Indication: Keratosis follicular
     Dosage: DOSAGE TEXT: 50 MG, QD
     Route: 048
  2. ACITRETIN [Suspect]
     Active Substance: ACITRETIN
     Indication: Keratosis follicular
     Dosage: DOSAGE TEXT: 25 MG, QD
     Route: 048
  3. BETAMETHASONE DIPROPIONATE [Concomitant]
     Active Substance: BETAMETHASONE DIPROPIONATE
     Indication: Keratosis follicular
     Dosage: 0.05%
     Route: 065
  4. BETAMETHASONE DIPROPIONATE [Concomitant]
     Active Substance: BETAMETHASONE DIPROPIONATE
     Indication: Keratosis follicular
     Route: 065

REACTIONS (2)
  - Keratosis follicular [Unknown]
  - Therapeutic product effect incomplete [Unknown]
